FAERS Safety Report 7676258-2 (Version None)
Quarter: 2011Q3

REPORT INFORMATION
  Report Type: 
  Country: None (occurrence: None)
  Receive Date: 20110805
  Receipt Date: 20110721
  Transmission Date: 20111222
  Serious: Yes (Hospitalization)
  Sender: FDA-Public Use
  Company Number: 2011MA009285

PATIENT
  Age: 83 Year
  Sex: Female

DRUGS (2)
  1. HYDROCODONE BITARTRATE [Suspect]
     Indication: BACK PAIN
     Dosage: 60 MG;QD
  2. OXYCODONE HCL [Suspect]
     Indication: BACK PAIN
     Dosage: 160 MG;QD

REACTIONS (10)
  - TORSADE DE POINTES [None]
  - CARDIAC DISORDER [None]
  - AGITATION [None]
  - HYPOTENSION [None]
  - CHRONIC OBSTRUCTIVE PULMONARY DISEASE [None]
  - CARDIOMEGALY [None]
  - STRESS CARDIOMYOPATHY [None]
  - DYSPNOEA [None]
  - CONDITION AGGRAVATED [None]
  - CONFUSIONAL STATE [None]
